FAERS Safety Report 8275070-3 (Version None)
Quarter: 2012Q2

REPORT INFORMATION
  Report Type: 
  Country: None (occurrence: None)
  Receive Date: 20120411
  Receipt Date: 20120402
  Transmission Date: 20120825
  Serious: No
  Sender: FDA-Public Use
  Company Number: US-B.I. PHARMACEUTICALS,INC./RIDGEFIELD-2012-BP-06108BP

PATIENT
  Sex: Female

DRUGS (7)
  1. TIMOPTIC [Concomitant]
     Indication: GLAUCOMA
     Route: 031
  2. PRADAXA [Suspect]
     Indication: ATRIAL FIBRILLATION
     Dosage: 300 MG
     Route: 048
     Dates: end: 20120320
  3. LIPITOR [Concomitant]
     Indication: BLOOD CHOLESTEROL INCREASED
     Route: 048
  4. XALATAN [Concomitant]
     Indication: GLAUCOMA
  5. MULTI-VITAMIN [Concomitant]
     Indication: SUPPLEMENTATION THERAPY
  6. POTASSIUM [Concomitant]
     Indication: SUPPLEMENTATION THERAPY
  7. ATENOLOL [Concomitant]
     Indication: HYPERTENSION
     Dosage: 50 MG
     Route: 048

REACTIONS (4)
  - THROAT IRRITATION [None]
  - ABDOMINAL DISTENSION [None]
  - DYSPEPSIA [None]
  - DYSPHAGIA [None]
